FAERS Safety Report 10010140 (Version 1)
Quarter: 2014Q1

REPORT INFORMATION
  Report Type: Report from Study
  Country: AR (occurrence: AR)
  Receive Date: 20140313
  Receipt Date: 20140313
  Transmission Date: 20141002
  Serious: Yes (Death, Hospitalization, Other)
  Sender: FDA-Public Use
  Company Number: PHHY2014AR030807

PATIENT
  Age: 83 Year
  Sex: Male

DRUGS (1)
  1. EXELON PATCH [Suspect]
     Indication: DEMENTIA ALZHEIMER^S TYPE
     Dosage: 9.5 MG (PATCH 10 CM2),DAILY
     Route: 062

REACTIONS (5)
  - Respiratory arrest [Fatal]
  - Pneumonia [Unknown]
  - Anaemia [Unknown]
  - Decubitus ulcer [Unknown]
  - Fall [Unknown]
